FAERS Safety Report 9251810 (Version 1)
Quarter: 2013Q2

REPORT INFORMATION
  Report Type: Report from Study
  Country: VE (occurrence: VE)
  Receive Date: 20130424
  Receipt Date: 20130424
  Transmission Date: 20140414
  Serious: Yes (Other)
  Sender: FDA-Public Use
  Company Number: VE-ABBOTT-13P-178-1077704-00

PATIENT
  Age: 73 Year
  Sex: Female
  Weight: 90 kg

DRUGS (3)
  1. HUMIRA [Suspect]
     Indication: PSORIASIS
     Route: 058
     Dates: start: 20120913, end: 20130120
  2. ARANDA [Concomitant]
     Indication: HYPERTENSION
     Route: 048
  3. CONCOR [Concomitant]
     Indication: HYPERTENSION
     Route: 048

REACTIONS (2)
  - Phlebitis [Recovering/Resolving]
  - Abscess limb [Recovering/Resolving]
